FAERS Safety Report 8351086-3 (Version None)
Quarter: 2012Q2

REPORT INFORMATION
  Report Type: 
  Country: None (occurrence: None)
  Receive Date: 20120510
  Receipt Date: 20120507
  Transmission Date: 20120825
  Serious: Yes (Life-Threatening, Hospitalization, Other)
  Sender: FDA-Public Use
  Company Number: PHHY2012DE026693

PATIENT
  Sex: Female
  Weight: 61 kg

DRUGS (11)
  1. DIGITOXIN TAB [Suspect]
     Indication: CARDIAC FAILURE
     Dosage: 0.07 MG/DAY
     Route: 048
     Dates: start: 20000101, end: 20111227
  2. AMLODIPINE [Suspect]
     Indication: HYPERTENSION
     Dosage: 5 MG/DAY
     Route: 048
     Dates: start: 20040101, end: 20111227
  3. FUROSEMIDE [Concomitant]
     Indication: OEDEMA
     Dosage: 40 MG/DAY
     Route: 048
     Dates: start: 20000101, end: 20111227
  4. ASPIRIN [Concomitant]
     Indication: PERIPHERAL ARTERIAL OCCLUSIVE DISEASE
  5. SIMVASTATIN [Concomitant]
     Indication: HYPERLIPIDAEMIA
     Dosage: 20 MG/DAY
     Route: 048
     Dates: start: 20000101, end: 20111227
  6. GLURENORM [Concomitant]
     Indication: DIABETES MELLITUS
     Dosage: 15 MG/DAY
     Route: 048
     Dates: start: 20090901, end: 20100801
  7. COAPROVEL [Suspect]
     Indication: HYPERTENSION
     Dosage: 150 MG/DAY
     Route: 048
     Dates: start: 20060101, end: 20111227
  8. ASPIRIN [Concomitant]
     Indication: CORONARY ARTERY DISEASE
     Dosage: 100 MG/DAY
     Route: 048
     Dates: start: 19980601
  9. OMEPRAZOLE [Concomitant]
     Indication: GASTROOESOPHAGEAL REFLUX DISEASE
     Dosage: 20 MG/DAY
     Route: 048
     Dates: start: 20070706
  10. ISMN [Concomitant]
     Indication: ANGINA PECTORIS
     Dosage: 40 MG/DAY
     Route: 048
     Dates: start: 19980601, end: 20111227
  11. RASILEZ [Suspect]
     Indication: HYPERTENSION
     Dosage: 150 MG/DAY
     Route: 048
     Dates: start: 20090320, end: 20111201

REACTIONS (5)
  - CARDIOGENIC SHOCK [None]
  - CARDIAC FAILURE [None]
  - HYPERKALAEMIA [None]
  - BRADYARRHYTHMIA [None]
  - TOXICITY TO VARIOUS AGENTS [None]
